FAERS Safety Report 8915936 (Version 1)
Quarter: 2012Q4

REPORT INFORMATION
  Report Type: 
  Country: SE (occurrence: SE)
  Receive Date: 20121119
  Receipt Date: 20121119
  Transmission Date: 20130627
  Serious: Yes (Hospitalization, Other)
  Sender: FDA-Public Use
  Company Number: SE-PFIZER INC-2012286249

PATIENT
  Age: 35 Year
  Sex: Female
  Weight: 83 kg

DRUGS (11)
  1. GENOTROPIN [Suspect]
     Dosage: 0.93 mg, 1x/day,7 injections/week
     Route: 058
     Dates: start: 19990721
  2. LEVOTHYROXINE [Concomitant]
     Indication: TSH DECREASE
     Dosage: UNK
     Dates: start: 19880501
  3. LEVOTHYROXINE [Concomitant]
     Indication: PRIMARY HYPOTHYROIDISM
  4. DESMOPRESSIN [Concomitant]
     Indication: ADH DECREASED
     Dosage: UNK
     Dates: start: 19880501
  5. CORTISONE ACETATE [Concomitant]
     Indication: ACTH DECREASED
     Dosage: UNK
     Dates: start: 19880501
  6. TRISEKVENS [Concomitant]
     Indication: LUTEINISING HORMONE DEFICIENCY
     Dosage: UNK
     Dates: start: 19900201
  7. TRISEKVENS [Concomitant]
     Indication: FOLLICLE-STIMULATING HORMONE DEFICIENCY
  8. TRISEKVENS [Concomitant]
     Indication: OVARIAN DISORDER
  9. TRISEKVENS [Concomitant]
     Indication: HYPOGONADISM
  10. LOSEC [Concomitant]
     Indication: GASTRITIS
     Dosage: UNK
     Dates: start: 20000608
  11. LOSEC [Concomitant]
     Indication: DUODENITIS

REACTIONS (1)
  - Pneumonia [Unknown]
